FAERS Safety Report 8133631-6 (Version None)
Quarter: 2012Q1

REPORT INFORMATION
  Report Type: 
  Country: None (occurrence: None)
  Receive Date: 20120213
  Receipt Date: 20120210
  Transmission Date: 20120608
  Serious: Yes (Hospitalization)
  Sender: FDA-Public Use
  Company Number: NL-ROCHE-1011138

PATIENT
  Sex: Female
  Weight: 61 kg

DRUGS (10)
  1. VINCRISTINE [Suspect]
     Indication: DIFFUSE LARGE B-CELL LYMPHOMA
     Route: 042
     Dates: start: 20110530, end: 20110919
  2. COTRIMOXIN [Concomitant]
     Route: 048
     Dates: start: 20110530, end: 20111107
  3. ISONIAZID [Concomitant]
     Route: 048
     Dates: start: 20110530, end: 20111107
  4. FILGRASTIM [Suspect]
     Indication: DIFFUSE LARGE B-CELL LYMPHOMA
     Route: 058
     Dates: start: 20110531, end: 20110901
  5. MABTHERA [Suspect]
     Indication: DIFFUSE LARGE B-CELL LYMPHOMA
     Route: 042
     Dates: start: 20110530, end: 20110919
  6. CYCLOPHOSPHAMIDE [Suspect]
     Indication: DIFFUSE LARGE B-CELL LYMPHOMA
     Route: 042
     Dates: start: 20110530, end: 20110919
  7. VALACICLOVIR [Concomitant]
     Indication: PROPHYLAXIS
     Dosage: 2X500
     Route: 048
     Dates: start: 20110530, end: 20111107
  8. DOXORUBICIN HCL [Suspect]
     Indication: DIFFUSE LARGE B-CELL LYMPHOMA
     Route: 042
     Dates: start: 20110530, end: 20110919
  9. VINBLASTINE SULFATE [Suspect]
     Indication: DIFFUSE LARGE B-CELL LYMPHOMA
     Route: 042
     Dates: start: 20110905, end: 20110919
  10. PREDNISONE TAB [Suspect]
     Indication: DIFFUSE LARGE B-CELL LYMPHOMA
     Dosage: 2X50, DAILY
     Route: 048
     Dates: start: 20110530, end: 20110923

REACTIONS (1)
  - CARDIOMYOPATHY [None]
